FAERS Safety Report 15504647 (Version 3)
Quarter: 2018Q4

REPORT INFORMATION
  Report Type: Spontaneous
  Country: US (occurrence: US)
  Receive Date: 20181016
  Receipt Date: 20181119
  Transmission Date: 20190205
  Serious: No
  Sender: FDA-Public Use
  Company Number: US-SA-2018SA282076

PATIENT
  Age: 73 Year
  Sex: Female

DRUGS (1)
  1. ICY HOT WITH LIDOCAINE PAIN RELIEVING [Suspect]
     Active Substance: LIDOCAINE\MENTHOL
     Indication: BACK PAIN
     Route: 061

REACTIONS (2)
  - Drug ineffective [Unknown]
  - Product dispensing error [Unknown]
